FAERS Safety Report 4615001-8 (Version None)
Quarter: 2005Q1

REPORT INFORMATION
  Report Type: 
  Country: None (occurrence: None)
  Receive Date: 20050322
  Receipt Date: 20050225
  Transmission Date: 20050727
  Serious: Yes (Hospitalization)
  Sender: FDA-Public Use
  Company Number: FR-ROCHE-399057

PATIENT
  Age: 48 Year
  Sex: Female

DRUGS (6)
  1. RIVOTRIL [Suspect]
     Indication: STATUS EPILEPTICUS
     Route: 042
     Dates: start: 20050117, end: 20050118
  2. PRODILANTIN [Suspect]
     Indication: STATUS EPILEPTICUS
     Route: 042
     Dates: start: 20050117, end: 20050119
  3. TRILEPTAL [Suspect]
     Indication: EPILEPSY
     Route: 048
     Dates: start: 20030101, end: 20050119
  4. BETAFERON [Suspect]
     Indication: MULTIPLE SCLEROSIS
     Route: 058
     Dates: end: 20050118
  5. AUGMENTIN '125' [Suspect]
     Indication: DRUG USE FOR UNKNOWN INDICATION
     Route: 065
  6. DEPAKENE [Suspect]
     Indication: EPILEPSY
     Route: 065
     Dates: start: 20050117, end: 20050118

REACTIONS (1)
  - HEPATITIS FULMINANT [None]
